FAERS Safety Report 5427497-2 (Version None)
Quarter: 2007Q3

REPORT INFORMATION
  Report Type: 
  Country: None (occurrence: None)
  Receive Date: 20070824
  Receipt Date: 20070824
  Transmission Date: 20080115
  Serious: Yes (Other)
  Sender: FDA-Public Use
  Company Number: None

PATIENT
  Sex: Male
  Weight: 2.9937 kg

DRUGS (1)
  1. BRETHINE [Suspect]
     Indication: PREMATURE LABOUR
     Dosage: 5 MG TAB EVERY 4-6 HOURS OTHER
     Route: 050
     Dates: start: 19930713, end: 19930806

REACTIONS (5)
  - ATTENTION DEFICIT/HYPERACTIVITY DISORDER [None]
  - BODY HEIGHT BELOW NORMAL [None]
  - DRUG EXPOSURE DURING PREGNANCY [None]
  - EDUCATIONAL PROBLEM [None]
  - SOCIAL PROBLEM [None]
